FAERS Safety Report 19474148 (Version 1)
Quarter: 2021Q2

REPORT INFORMATION
  Report Type: Spontaneous
  Country: JP (occurrence: JP)
  Receive Date: 20210630
  Receipt Date: 20210630
  Transmission Date: 20210717
  Serious: Yes (Other)
  Sender: FDA-Public Use
  Company Number: JP-AMGEN-JPNSP2021099664

PATIENT
  Age: 14 Year

DRUGS (2)
  1. RANMARK [Suspect]
     Active Substance: DENOSUMAB
     Indication: BONE GIANT CELL TUMOUR
     Dosage: UNK UNK, ONCE EVERY 1 MO
     Route: 065
  2. RANMARK [Suspect]
     Active Substance: DENOSUMAB
     Dosage: UNK UNK, ONCE EVERY 6 MO
     Route: 065

REACTIONS (1)
  - Hypercalcaemia [Unknown]
